FAERS Safety Report 16984484 (Version 2)
Quarter: 2024Q3

REPORT INFORMATION
  Report Type: Spontaneous
  Country: US (occurrence: US)
  Receive Date: 20191101
  Receipt Date: 20240906
  Transmission Date: 20241017
  Serious: No
  Sender: DOMPE FARMACEUTICI
  Company Number: US-FARMAPROD-201907-1125

PATIENT
  Sex: Male

DRUGS (29)
  1. OXERVATE [Suspect]
     Active Substance: CENEGERMIN-BKBJ
     Indication: Neurotrophic keratopathy
     Route: 047
     Dates: start: 20190708, end: 20190910
  2. OXERVATE [Suspect]
     Active Substance: CENEGERMIN-BKBJ
     Route: 047
     Dates: start: 20230711
  3. OXERVATE [Suspect]
     Active Substance: CENEGERMIN-BKBJ
  4. OXERVATE [Suspect]
     Active Substance: CENEGERMIN-BKBJ
  5. MANGANESE SULFATE [Concomitant]
     Active Substance: MANGANESE SULFATE
  6. SELENIUM [Concomitant]
     Active Substance: SELENIUM
  7. THIAMINE HYDROCHLORIDE [Concomitant]
     Active Substance: THIAMINE HYDROCHLORIDE
  8. MAGNESIUM [Concomitant]
     Active Substance: MAGNESIUM
  9. VITAMIN A [Concomitant]
     Active Substance: VITAMIN A
  10. ZINC [Concomitant]
     Active Substance: ZINC
  11. VITAMIN C [Concomitant]
     Active Substance: ASCORBIC ACID
  12. COENZYME Q10 [Concomitant]
     Active Substance: DIETARY SUPPLEMENT\UBIDECARENONE
  13. LYSINE [Concomitant]
     Active Substance: LYSINE
  14. EZETIMIBE [Concomitant]
     Active Substance: EZETIMIBE
  15. LEXAPRO [Concomitant]
     Active Substance: ESCITALOPRAM OXALATE
  16. VITAMIN D2 [Concomitant]
     Active Substance: ERGOCALCIFEROL
  17. NP THYROID [Concomitant]
     Active Substance: LEVOTHYROXINE\LIOTHYRONINE
  18. GABAPENTIN [Concomitant]
     Active Substance: GABAPENTIN
  19. BRIMONIDINE TARTRATE-TIMOLOL [Concomitant]
  20. CEQUA [Concomitant]
     Active Substance: CYCLOSPORINE
  21. JARDIANCE [Concomitant]
     Active Substance: EMPAGLIFLOZIN
  22. TIMOLOL MALEATE [Concomitant]
     Active Substance: TIMOLOL MALEATE
  23. PREDNISOLONE ACETATE [Concomitant]
     Active Substance: PREDNISOLONE ACETATE
  24. DOXYCYCLINE HYCLATE [Concomitant]
     Active Substance: DOXYCYCLINE HYCLATE
  25. HYDROCHLOROTHIAZIDE [Concomitant]
     Active Substance: HYDROCHLOROTHIAZIDE
  26. ROSUVASTATIN CALCIUM [Concomitant]
     Active Substance: ROSUVASTATIN CALCIUM
  27. GLIPIZIDE [Concomitant]
     Active Substance: GLIPIZIDE
  28. METFORMIN HYDROCHLORIDE [Concomitant]
     Active Substance: METFORMIN HYDROCHLORIDE
  29. SOLIQUA 100-33 [Concomitant]
     Dosage: 100-33/ ML INSULIN PEN

REACTIONS (10)
  - Eye swelling [Unknown]
  - Eye pain [Unknown]
  - Ocular hyperaemia [Unknown]
  - Eyelid irritation [Unknown]
  - Intentional product misuse [Unknown]
  - Ocular discomfort [Unknown]
  - Vision blurred [Unknown]
  - Hordeolum [Unknown]
  - Product dose omission issue [Unknown]
  - Eyelid pain [Unknown]
